FAERS Safety Report 9337775 (Version 1)
Quarter: 2013Q2

REPORT INFORMATION
  Report Type: Spontaneous
  Country: IT (occurrence: IT)
  Receive Date: 20130607
  Receipt Date: 20130607
  Transmission Date: 20140414
  Serious: Yes (Other)
  Sender: FDA-Public Use
  Company Number: IT-MYLANLABS-2013S1011577

PATIENT
  Age: 4 Year
  Sex: Female
  Weight: 20 kg

DRUGS (4)
  1. LORAZEPAM [Suspect]
     Indication: PRODUCT USED FOR UNKNOWN INDICATION
     Route: 048
     Dates: start: 20130429, end: 20130429
  2. ANAFRANIL [Suspect]
     Indication: PRODUCT USED FOR UNKNOWN INDICATION
     Route: 048
     Dates: start: 20130429, end: 20130429
  3. EUTIROX [Suspect]
     Indication: PRODUCT USED FOR UNKNOWN INDICATION
  4. ALPRAZOLAM [Suspect]
     Indication: PRODUCT USED FOR UNKNOWN INDICATION

REACTIONS (5)
  - Aphasia [Recovered/Resolved]
  - Presyncope [Recovered/Resolved]
  - Visual acuity reduced [Recovered/Resolved]
  - Balance disorder [Recovered/Resolved]
  - Poisoning [Recovered/Resolved]
